FAERS Safety Report 8297094-2 (Version None)
Quarter: 2012Q2

REPORT INFORMATION
  Report Type: 
  Country: None (occurrence: None)
  Receive Date: 20120416
  Receipt Date: 20120405
  Transmission Date: 20120825
  Serious: Yes (Hospitalization)
  Sender: FDA-Public Use
  Company Number: ACO_29972_2012

PATIENT
  Age: 66 Year
  Sex: Male
  Weight: 95.2 kg

DRUGS (16)
  1. PRILOSEC [Concomitant]
  2. VALIUM [Concomitant]
  3. OXYCODONE HCL [Concomitant]
  4. FLOMAX [Concomitant]
  5. AMPYRA [Suspect]
     Indication: GAIT DISTURBANCE
     Dosage: 10 MG, BID, ORAL
     Route: 048
     Dates: start: 20110101
  6. NAPROSYN [Concomitant]
  7. ASPIRIN [Concomitant]
  8. VOLTAREN [Concomitant]
  9. ATENOLOL [Concomitant]
  10. COPAXONE [Concomitant]
  11. PLAVIX [Concomitant]
  12. COLACE (DOCUSATE SODIUM) [Concomitant]
  13. IMDUR [Concomitant]
  14. MEVACOR [Concomitant]
  15. HYDROCODONE BITARTRATE [Concomitant]
  16. LISINOPRIL [Concomitant]

REACTIONS (2)
  - HIP ARTHROPLASTY [None]
  - THROMBOSIS [None]
